FAERS Safety Report 17658334 (Version 2)
Quarter: 2020Q2

REPORT INFORMATION
  Report Type: Spontaneous
  Country: CH (occurrence: CH)
  Receive Date: 20200412
  Receipt Date: 20200520
  Transmission Date: 20200713
  Serious: Yes (Congenital Anomaly)
  Sender: FDA-Public Use
  Company Number: NVSC2020CH095454

PATIENT

DRUGS (4)
  1. LEVOTHYROXINE. [Suspect]
     Active Substance: LEVOTHYROXINE
     Indication: FOETAL EXPOSURE DURING PREGNANCY
     Dosage: UNK UKN (MATERNAL EXPOSURE DURING PREGNANCY, MATERNAL DOSE: UNKNOWN)
     Route: 064
  2. SALMETEROL [Suspect]
     Active Substance: SALMETEROL
     Indication: FOETAL EXPOSURE DURING PREGNANCY
     Dosage: UNK UKN (MATERNAL EXPOSURE DURING PREGNANCY, MATERNAL DOSE: UNKNOWN)
     Route: 064
  3. LAMOTRIGINE. [Suspect]
     Active Substance: LAMOTRIGINE
     Indication: FOETAL EXPOSURE DURING PREGNANCY
     Dosage: UNK UKN (MATERNAL EXPOSURE DURING PREGNANCY, MATERNAL DOSE: UNKNOWN)
     Route: 064
  4. SALBUTAMOL [Suspect]
     Active Substance: ALBUTEROL
     Indication: FOETAL EXPOSURE DURING PREGNANCY
     Dosage: UNK UKN (MATERNAL EXPOSURE DURING PREGNANCY, MATERNAL DOSE: UNKNOWN)
     Route: 064

REACTIONS (2)
  - Foetal exposure during pregnancy [Unknown]
  - Heart disease congenital [Unknown]
